FAERS Safety Report 6359157-8 (Version None)
Quarter: 2009Q3

REPORT INFORMATION
  Report Type: 
  Country: None (occurrence: None)
  Receive Date: 20090917
  Receipt Date: 20090911
  Transmission Date: 20100115
  Serious: Yes (Hospitalization)
  Sender: FDA-Public Use
  Company Number: JP-JNJFOC-20090902786

PATIENT
  Age: 60 Year
  Sex: Male

DRUGS (4)
  1. LOPEMIN [Suspect]
     Indication: DRUG USE FOR UNKNOWN INDICATION
     Route: 048
  2. CAMPTOSAR [Suspect]
     Indication: CHEMOTHERAPY
     Route: 065
  3. CISPLATIN [Suspect]
     Indication: CHEMOTHERAPY
     Route: 065
  4. BIFIDOBACTERIUM [Concomitant]
     Route: 048

REACTIONS (2)
  - EOSINOPHILIA [None]
  - HYPERSENSITIVITY [None]
